FAERS Safety Report 4598888-7 (Version None)
Quarter: 2005Q1

REPORT INFORMATION
  Report Type: 
  Country: None (occurrence: None)
  Receive Date: 20050301
  Receipt Date: 20050214
  Transmission Date: 20050727
  Serious: Yes (Hospitalization)
  Sender: FDA-Public Use
  Company Number: A03200500460

PATIENT
  Sex: Male

DRUGS (1)
  1. PLAQUENIL [Suspect]
     Indication: SARCOIDOSIS
     Dosage: ORAL
     Route: 048
     Dates: start: 20050101

REACTIONS (3)
  - ANXIETY [None]
  - NERVOUSNESS [None]
  - PALPITATIONS [None]
